FAERS Safety Report 4608269-5 (Version None)
Quarter: 2005Q1

REPORT INFORMATION
  Report Type: 
  Country: None (occurrence: None)
  Receive Date: 20050311
  Receipt Date: 20050228
  Transmission Date: 20050727
  Serious: Yes (Hospitalization)
  Sender: FDA-Public Use
  Company Number: US014761

PATIENT
  Age: 45 Year
  Sex: Female

DRUGS (13)
  1. ACTIQ [Suspect]
     Indication: PAIN
     Dosage: 400 UG PRN BUCCAL
     Route: 002
     Dates: start: 20031101
  2. DURAGESIC-100 [Suspect]
     Indication: PAIN
     Dosage: 150 UG Q72HR TRANSDERMAL
     Route: 062
     Dates: start: 20050207, end: 20050208
  3. ETORICOXIB [Concomitant]
  4. ANASTROZOLE [Concomitant]
  5. AMITRIPTYLINE HCL [Concomitant]
  6. LEVOMEPROMAZINE [Concomitant]
  7. CITALOPRAM HYDROBROMIDE [Concomitant]
  8. LANSOPRAZOLE [Concomitant]
  9. CINNARIZINE [Concomitant]
  10. PREDNISOLONE [Concomitant]
  11. GABAPENTIN [Concomitant]
  12. CO-DANTHRAMER [Concomitant]
  13. ASPIRIN [Concomitant]

REACTIONS (2)
  - DRUG TOXICITY [None]
  - LOSS OF CONSCIOUSNESS [None]
